FAERS Safety Report 26003436 (Version 1)
Quarter: 2025Q4

REPORT INFORMATION
  Report Type: Spontaneous
  Country: EU (occurrence: EU)
  Receive Date: 20251106
  Receipt Date: 20251106
  Transmission Date: 20260117
  Serious: Yes (Other)
  Sender: AUROBINDO
  Company Number: EU-INFARMED-F202510-543

PATIENT
  Age: 48 Year
  Sex: Male
  Weight: 78 kg

DRUGS (9)
  1. KETOROLAC TROMETHAMINE [Suspect]
     Active Substance: KETOROLAC TROMETHAMINE
     Indication: Product used for unknown indication
     Dosage: 30 MILLIGRAM
     Route: 042
     Dates: start: 20251016, end: 20251016
  2. FENTANYL [Concomitant]
     Active Substance: FENTANYL
     Indication: Induction of anaesthesia
     Dosage: 0.1 MILLIGRAM
     Route: 042
     Dates: start: 20251016, end: 20251016
  3. FENTANYL [Concomitant]
     Active Substance: FENTANYL
     Indication: Intraoperative care
  4. PROPOFOL [Concomitant]
     Active Substance: PROPOFOL
     Indication: Induction of anaesthesia
     Dosage: 270 MILLIGRAM  (DOSES TITULADAS)
     Route: 042
     Dates: start: 20251016, end: 20251016
  5. PROPOFOL [Concomitant]
     Active Substance: PROPOFOL
     Indication: Intraoperative care
  6. ROCURONIUM BROMIDE [Concomitant]
     Active Substance: ROCURONIUM BROMIDE
     Indication: Induction of anaesthesia
     Dosage: UNK
     Route: 065
     Dates: start: 20251016, end: 20251016
  7. ROCURONIUM BROMIDE [Concomitant]
     Active Substance: ROCURONIUM BROMIDE
     Indication: Intraoperative care
  8. ACETAMINOPHEN [Concomitant]
     Active Substance: ACETAMINOPHEN
     Indication: Intraoperative care
     Dosage: UNK
     Route: 042
     Dates: start: 20251016, end: 20251016
  9. Sugamadex teva [Concomitant]
     Indication: Intraoperative care
     Dosage: UNK (10:25 AM - LAST DRUG ADMINISTERED IN THE OPERATING ROOM)
     Route: 065
     Dates: start: 20251016, end: 20251016

REACTIONS (2)
  - Eyelid oedema [Recovered/Resolved]
  - Conjunctival oedema [Recovered/Resolved]

NARRATIVE: CASE EVENT DATE: 20251016
